FAERS Safety Report 4384454-5 (Version None)
Quarter: 2004Q2

REPORT INFORMATION
  Report Type: 
  Country: None (occurrence: None)
  Receive Date: 20040607
  Receipt Date: 20040224
  Transmission Date: 20050107
  Serious: Yes (Other)
  Sender: FDA-Public Use
  Company Number: 349250

PATIENT
  Sex: Male
  Weight: 2.8 kg

DRUGS (3)
  1. ACCUTANE [Suspect]
     Indication: DRUG USE FOR UNKNOWN INDICATION
     Dates: start: 20021015, end: 20030131
  2. ORAL CONTRACEPTIVE PILL (ORAL CONTRACEPTIVE NOS) [Concomitant]
  3. EX-LAX (PHENOLPHTHALEIN, YELLOW) [Concomitant]

REACTIONS (2)
  - NO ADVERSE EFFECT [None]
  - NORMAL NEWBORN [None]
